FAERS Safety Report 8392153-8 (Version None)
Quarter: 2012Q1

REPORT INFORMATION
  Report Type: 
  Country: None (occurrence: None)
  Receive Date: 20120323
  Receipt Date: 20110421
  Transmission Date: 20120608
  Serious: Yes (Hospitalization, Other)
  Sender: FDA-Public Use
  Company Number: 163-21880-11030122

PATIENT
  Age: 81 Year
  Sex: Male

DRUGS (5)
  1. ZOMETA [Concomitant]
  2. PROPRANOLOL [Concomitant]
  3. REVLIMID [Suspect]
     Indication: MYELOMA RECURRENCE
     Dosage: 25 MG, DAILY X 21 DAYS, PO ; 25 MG, DAILY X 21 DAYS, PO
     Route: 048
     Dates: start: 20110317
  4. REVLIMID [Suspect]
     Indication: MYELOMA RECURRENCE
     Dosage: 25 MG, DAILY X 21 DAYS, PO ; 25 MG, DAILY X 21 DAYS, PO
     Route: 048
     Dates: start: 20100527, end: 20110101
  5. OMEPRAZOLE [Concomitant]

REACTIONS (2)
  - DIARRHOEA [None]
  - DEEP VEIN THROMBOSIS [None]
